FAERS Safety Report 4942772-3 (Version None)
Quarter: 2006Q1

REPORT INFORMATION
  Report Type: 
  Country: None (occurrence: None)
  Receive Date: 20060309
  Receipt Date: 20060224
  Transmission Date: 20060701
  Serious: Yes (Life-Threatening, Hospitalization)
  Sender: FDA-Public Use
  Company Number: 2006015468

PATIENT
  Age: 53 Year
  Sex: Male
  Weight: 75 kg

DRUGS (4)
  1. DEPO-MEDROL [Suspect]
     Indication: ABDOMINAL PAIN
     Dosage: (ONCE), OTHER
     Route: 050
     Dates: start: 20050701, end: 20050701
  2. DEPO-MEDROL [Suspect]
     Indication: ARTHRITIS
     Dosage: (ONCE), OTHER
     Route: 050
     Dates: start: 20050701, end: 20050701
  3. DEPO-MEDROL [Suspect]
     Indication: DIARRHOEA
     Dosage: (ONCE), OTHER
     Route: 050
     Dates: start: 20050701, end: 20050701
  4. XYLOCAINE [Suspect]
     Indication: ARTHRITIS
     Dosage: (ONCE), OTHER
     Route: 050
     Dates: start: 20050701, end: 20050701

REACTIONS (1)
  - ANAPHYLACTIC SHOCK [None]
